FAERS Safety Report 4805779-2 (Version None)
Quarter: 2005Q4

REPORT INFORMATION
  Report Type: 
  Country: None (occurrence: None)
  Receive Date: 20051018
  Receipt Date: 20051005
  Transmission Date: 20060501
  Serious: Yes (Other)
  Sender: FDA-Public Use
  Company Number: FABR-11249

PATIENT
  Age: 38 Year
  Sex: Male
  Weight: 93 kg

DRUGS (6)
  1. FABRAZYME [Suspect]
     Indication: FABRY'S DISEASE
     Dosage: 90 MG Q2WKS IV
     Route: 042
     Dates: start: 20030910
  2. LORAZEPAM [Concomitant]
  3. OXYCONTIN [Concomitant]
  4. TOPAMAX [Concomitant]
  5. PROZAC [Concomitant]
  6. OXYCONTIN [Concomitant]

REACTIONS (7)
  - ANTIBODY TEST POSITIVE [None]
  - BLOOD IMMUNOGLOBULIN E INCREASED [None]
  - CHEST DISCOMFORT [None]
  - EYELID OEDEMA [None]
  - RASH ERYTHEMATOUS [None]
  - RASH MACULO-PAPULAR [None]
  - RASH PRURITIC [None]
